FAERS Safety Report 7599554-6 (Version None)
Quarter: 2011Q3

REPORT INFORMATION
  Report Type: 
  Country: None (occurrence: None)
  Receive Date: 20110711
  Receipt Date: 20090716
  Transmission Date: 20111222
  Serious: No
  Sender: FDA-Public Use
  Company Number: 2009BI022317

PATIENT
  Sex: Female

DRUGS (2)
  1. ZYRTEC [Concomitant]
     Indication: MULTIPLE ALLERGIES
  2. TYSABRI [Suspect]
     Indication: MULTIPLE SCLEROSIS
     Route: 042
     Dates: start: 20090624

REACTIONS (8)
  - ANXIETY [None]
  - EAR CONGESTION [None]
  - FATIGUE [None]
  - MULTIPLE ALLERGIES [None]
  - COUGH [None]
  - FEELING ABNORMAL [None]
  - SINUSITIS [None]
  - PULMONARY CONGESTION [None]
